FAERS Safety Report 25590084 (Version 2)
Quarter: 2025Q3

REPORT INFORMATION
  Report Type: Spontaneous
  Country: MX (occurrence: MX)
  Receive Date: 20250722
  Receipt Date: 20250725
  Transmission Date: 20251020
  Serious: Yes (Other)
  Sender: NOVO NORDISK
  Company Number: MX-NOVOPROD-1479550

PATIENT
  Age: 67 Year
  Sex: Female
  Weight: 62.5 kg

DRUGS (2)
  1. WEGOVY [Suspect]
     Active Substance: SEMAGLUTIDE
     Indication: Hepatic steatosis
  2. WEGOVY [Suspect]
     Active Substance: SEMAGLUTIDE
     Indication: Insulin resistance
     Dates: start: 202504

REACTIONS (3)
  - Ankle fracture [Unknown]
  - Ligament rupture [Unknown]
  - Off label use [Unknown]

NARRATIVE: CASE EVENT DATE: 20250401
